FAERS Safety Report 5203881-7 (Version None)
Quarter: 2007Q1

REPORT INFORMATION
  Report Type: 
  Country: None (occurrence: None)
  Receive Date: 20070110
  Receipt Date: 20061227
  Transmission Date: 20070707
  Serious: Yes (Hospitalization)
  Sender: FDA-Public Use
  Company Number: US-SHR-US-2006-040705

PATIENT
  Age: 64 Year
  Sex: Female

DRUGS (2)
  1. BETASERON [Suspect]
     Indication: RELAPSING-REMITTING MULTIPLE SCLEROSIS
     Route: 058
     Dates: start: 19940407, end: 20041202
  2. BETASERON [Suspect]
     Dosage: 8 MIU, EVERY 2D
     Route: 058
     Dates: start: 20041223

REACTIONS (4)
  - ABDOMINAL PAIN UPPER [None]
  - BLADDER DISORDER [None]
  - SMALL INTESTINAL OBSTRUCTION [None]
  - URINARY TRACT INFECTION [None]
